FAERS Safety Report 13546499 (Version 1)
Quarter: 2017Q2

REPORT INFORMATION
  Report Type: Report from Study
  Country: GR (occurrence: GR)
  Receive Date: 20170515
  Receipt Date: 20170515
  Transmission Date: 20170830
  Serious: Yes (Death, Hospitalization, Disabling, Other)
  Sender: FDA-Public Use
  Company Number: GR-ASTRAZENECA-2016SF17336

PATIENT
  Age: 76 Year
  Sex: Male

DRUGS (8)
  1. ZINADOL [Concomitant]
     Active Substance: CEFUROXIME AXETIL
     Indication: URINARY TRACT INFECTION
     Dosage: 500.000MGBID
     Route: 048
     Dates: start: 20160802
  2. MEDI4736 [Suspect]
     Active Substance: DURVALUMAB
     Indication: BLADDER TRANSITIONAL CELL CARCINOMA
     Route: 042
     Dates: start: 20160603, end: 20160603
  3. LOSEC [Concomitant]
     Active Substance: OMEPRAZOLE
     Indication: PROPHYLAXIS
     Dosage: 20.000MGQD
     Route: 048
     Dates: start: 20161006
  4. EPOETIN ALFA [Concomitant]
     Active Substance: ERYTHROPOIETIN
     Indication: ANAEMIA
     Dosage: 40000.000IUEVERY WEEK
     Route: 058
     Dates: start: 20160603
  5. MEDROL (METHYLPREDNISOLONE) [Concomitant]
     Indication: ARTHRITIS
     Dosage: 16.000MGTID
     Route: 048
     Dates: start: 20161006
  6. MEDI4736 [Suspect]
     Active Substance: DURVALUMAB
     Indication: BLADDER TRANSITIONAL CELL CARCINOMA
     Route: 042
     Dates: start: 20160630, end: 20160630
  7. MEDI4736 [Suspect]
     Active Substance: DURVALUMAB
     Indication: BLADDER TRANSITIONAL CELL CARCINOMA
     Route: 042
     Dates: start: 20160811, end: 20160811
  8. MEDI4736 [Suspect]
     Active Substance: DURVALUMAB
     Indication: BLADDER TRANSITIONAL CELL CARCINOMA
     Route: 042
     Dates: start: 20160908, end: 20160908

REACTIONS (1)
  - Autoimmune arthritis [Not Recovered/Not Resolved]

NARRATIVE: CASE EVENT DATE: 20161101
